FAERS Safety Report 9498163 (Version 1)
Quarter: 2013Q3

REPORT INFORMATION
  Report Type: Spontaneous
  Country: US (occurrence: US)
  Receive Date: 20130904
  Receipt Date: 20130904
  Transmission Date: 20140515
  Serious: No
  Sender: FDA-Public Use
  Company Number: US-TEVA-428313USA

PATIENT
  Sex: 0

DRUGS (2)
  1. PROAIR HFA [Suspect]
     Indication: COUGH
  2. PROAIR HFA [Suspect]
     Indication: PNEUMONIA

REACTIONS (7)
  - Headache [Recovered/Resolved]
  - Chromaturia [Recovered/Resolved]
  - Sensory disturbance [Recovered/Resolved]
  - Cough [Recovered/Resolved]
  - Insomnia [Recovered/Resolved]
  - Anxiety [Recovered/Resolved]
  - Drug ineffective [Unknown]
